FAERS Safety Report 7491036-5 (Version None)
Quarter: 2011Q2

REPORT INFORMATION
  Report Type: 
  Country: None (occurrence: None)
  Receive Date: 20110519
  Receipt Date: 20100825
  Transmission Date: 20111010
  Serious: Yes (Other)
  Sender: FDA-Public Use
  Company Number: DE-GENENTECH-318544

PATIENT
  Age: 85 Year
  Sex: Female

DRUGS (1)
  1. LUCENTIS [Suspect]
     Indication: MACULAR DEGENERATION
     Route: 031

REACTIONS (4)
  - DIABETES MELLITUS [None]
  - CARDIAC DISORDER [None]
  - GASTROENTERITIS VIRAL [None]
  - DRUG HYPERSENSITIVITY [None]
